FAERS Safety Report 5090046-5 (Version None)
Quarter: 2006Q3

REPORT INFORMATION
  Report Type: 
  Country: None (occurrence: None)
  Receive Date: 20060828
  Receipt Date: 20060823
  Transmission Date: 20061208
  Serious: Yes (Other)
  Sender: FDA-Public Use
  Company Number: US-JNJFOC-20060805399

PATIENT
  Sex: Female
  Weight: 63.5 kg

DRUGS (11)
  1. REMICADE [Suspect]
     Route: 042
     Dates: start: 20040801, end: 20060818
  2. REMICADE [Suspect]
     Indication: RHEUMATOID ARTHRITIS
     Route: 042
     Dates: start: 20040801, end: 20060818
  3. BENADRYL [Concomitant]
     Indication: PREMEDICATION
  4. ZYRTEC [Concomitant]
     Indication: PREMEDICATION
  5. METHOTREXATE [Concomitant]
     Indication: PREMEDICATION
  6. SULINDAC [Concomitant]
  7. FOLIC ACID [Concomitant]
  8. GLUCOSAMINE CHONDROITIN [Concomitant]
  9. CALCIUM WITH VITAMIN D [Concomitant]
  10. FLEXERIL [Concomitant]
  11. HYDROCHLOROTHIAZIDE [Concomitant]

REACTIONS (8)
  - BACK PAIN [None]
  - BLOOD PRESSURE DECREASED [None]
  - DEPRESSED LEVEL OF CONSCIOUSNESS [None]
  - DYSPNOEA [None]
  - INFUSION RELATED REACTION [None]
  - LETHARGY [None]
  - MUSCLE SPASMS [None]
  - ORTHOSTATIC HYPOTENSION [None]
